FAERS Safety Report 9029062 (Version 2)
Quarter: 2013Q1

REPORT INFORMATION
  Report Type: Spontaneous
  Country: FI (occurrence: FI)
  Receive Date: 20130122
  Receipt Date: 20130122
  Transmission Date: 20140127
  Serious: Yes (Other)
  Sender: FDA-Public Use
  Company Number: FI-ROCHE-1180474

PATIENT
  Age: 69 Year
  Sex: Male

DRUGS (4)
  1. CAPECITABINE [Suspect]
     Indication: ADENOCARCINOMA
     Route: 065
  2. BEVACIZUMAB [Suspect]
     Indication: ADENOCARCINOMA
     Route: 065
  3. IRINOTECAN [Concomitant]
     Indication: ADENOCARCINOMA
  4. OXALIPLATIN [Concomitant]
     Indication: ADENOCARCINOMA

REACTIONS (2)
  - Metastases to liver [Recovered/Resolved]
  - Palmar-plantar erythrodysaesthesia syndrome [Recovered/Resolved]
